FAERS Safety Report 5778664-X (Version None)
Quarter: 2008Q2

REPORT INFORMATION
  Report Type: 
  Country: None (occurrence: None)
  Receive Date: 20080619
  Receipt Date: 20080612
  Transmission Date: 20081010
  Serious: Yes (Other)
  Sender: FDA-Public Use
  Company Number: B0516898A

PATIENT
  Age: 79 Year
  Sex: Female

DRUGS (4)
  1. ZOVIRAX [Suspect]
     Indication: HERPES SIMPLEX
     Dosage: 500MG THREE TIMES PER DAY
     Route: 042
  2. ALEVIATIN [Concomitant]
     Indication: CONVULSION PROPHYLAXIS
     Dosage: 250MG PER DAY
     Route: 042
     Dates: start: 20060621, end: 20060624
  3. DECADRON [Concomitant]
     Indication: ENCEPHALITIS HERPES
     Dosage: 4MG PER DAY
     Dates: start: 20060623, end: 20060629
  4. GLOVENIN-I [Concomitant]
     Indication: ENCEPHALITIS HERPES
     Dosage: 2500MG PER DAY
     Route: 042
     Dates: start: 20060623, end: 20060627

REACTIONS (4)
  - BLOOD CREATININE INCREASED [None]
  - BLOOD UREA INCREASED [None]
  - RENAL FAILURE [None]
  - RENAL IMPAIRMENT [None]
